FAERS Safety Report 5237539-5 (Version None)
Quarter: 2007Q1

REPORT INFORMATION
  Report Type: 
  Country: None (occurrence: None)
  Receive Date: 20070213
  Receipt Date: 20070202
  Transmission Date: 20070707
  Serious: Yes (Other)
  Sender: FDA-Public Use
  Company Number: US-PFIZER INC-2006150420

PATIENT
  Sex: Male
  Weight: 99.8 kg

DRUGS (6)
  1. NORVASC [Suspect]
     Indication: HYPERTENSION
     Route: 048
  2. LIPITOR [Concomitant]
  3. MONTELUKAST SODIUM [Concomitant]
  4. TRICOR [Concomitant]
  5. XANAX [Concomitant]
  6. LEXAPRO [Concomitant]

REACTIONS (9)
  - ACCIDENT AT WORK [None]
  - BALANCE DISORDER [None]
  - CONCUSSION [None]
  - DEPRESSION [None]
  - DYSPHEMIA [None]
  - EAR DISORDER [None]
  - HEAD INJURY [None]
  - SLEEP DISORDER [None]
  - WEIGHT INCREASED [None]
